FAERS Safety Report 19739183 (Version 7)
Quarter: 2022Q4

REPORT INFORMATION
  Report Type: Report from Study
  Country: JP (occurrence: JP)
  Receive Date: 20210823
  Receipt Date: 20221020
  Transmission Date: 20230113
  Serious: Yes (Hospitalization, Other)
  Sender: FDA-Public Use
  Company Number: JP-ONO-2021JP019836

PATIENT
  Age: 74 Year
  Sex: Female
  Weight: 41.7 kg

DRUGS (10)
  1. BRAFTOVI [Suspect]
     Active Substance: ENCORAFENIB
     Indication: Colon cancer
     Dosage: 300 MG, EVERYDAY
     Route: 048
     Dates: start: 20210719, end: 20210812
  2. BRAFTOVI [Suspect]
     Active Substance: ENCORAFENIB
     Dosage: 300 MG, EVERYDAY
     Route: 048
     Dates: end: 20211115
  3. BRAFTOVI [Suspect]
     Active Substance: ENCORAFENIB
     Dosage: 300 MG, EVERYDAY
     Route: 048
     Dates: start: 20211206, end: 20211220
  4. MEKTOVI [Suspect]
     Active Substance: BINIMETINIB
     Indication: Colon cancer
     Dosage: 90 MG, EVERYDAY
     Route: 048
     Dates: start: 20210719, end: 20210812
  5. MEKTOVI [Suspect]
     Active Substance: BINIMETINIB
     Dosage: 90 MG, EVERYDAY
     Route: 048
     Dates: end: 20211115
  6. MEKTOVI [Suspect]
     Active Substance: BINIMETINIB
     Dosage: 90 MG, EVERYDAY
     Route: 048
     Dates: start: 20211206, end: 20211220
  7. ERBITUX [Suspect]
     Active Substance: CETUXIMAB
     Indication: Colon cancer
     Dosage: 400 MG/M2
     Route: 065
     Dates: start: 20210719, end: 20210812
  8. ERBITUX [Suspect]
     Active Substance: CETUXIMAB
     Dosage: 400 MG/M2
     Route: 065
     Dates: end: 20211115
  9. ERBITUX [Suspect]
     Active Substance: CETUXIMAB
     Dosage: 400 MG/M2
     Route: 065
     Dates: start: 20211206, end: 20211220
  10. CEFACLOR [Suspect]
     Active Substance: CEFACLOR
     Indication: Paronychia
     Dosage: UNK
     Route: 065

REACTIONS (8)
  - Acute kidney injury [Recovering/Resolving]
  - Arthralgia [Recovering/Resolving]
  - Decreased appetite [Not Recovered/Not Resolved]
  - Paronychia [Recovering/Resolving]
  - Drug eruption [Recovering/Resolving]
  - Rash [Recovering/Resolving]
  - Stomatitis [Recovering/Resolving]
  - Rash [Recovering/Resolving]

NARRATIVE: CASE EVENT DATE: 20210801
